FAERS Safety Report 10022892 (Version 3)
Quarter: 2014Q4

REPORT INFORMATION
  Report Type: Report from Study
  Country: US (occurrence: US)
  Receive Date: 20140319
  Receipt Date: 20141003
  Transmission Date: 20150528
  Serious: Yes (Death, Other)
  Sender: FDA-Public Use
  Company Number: US-GILEAD-2014-0096829

PATIENT
  Sex: Female
  Weight: 32.2 kg

DRUGS (28)
  1. CREON [Concomitant]
     Active Substance: PANCRELIPASE AMYLASE\PANCRELIPASE LIPASE\PANCRELIPASE PROTEASE
  2. MAG OXIDE [Concomitant]
  3. PRENATAL                           /00231801/ [Concomitant]
  4. TACROLIMUS. [Concomitant]
     Active Substance: TACROLIMUS
  5. VENLAFAXINE HYDROCHLORIDE. [Concomitant]
     Active Substance: VENLAFAXINE HYDROCHLORIDE
  6. VORICONAZOLE. [Concomitant]
     Active Substance: VORICONAZOLE
  7. ACETAMINOPHEN AND CODEINE [Concomitant]
     Active Substance: ACETAMINOPHEN\CODEINE PHOSPHATE
     Indication: HEADACHE
  8. ALBUTEROL SULFATE. [Concomitant]
     Active Substance: ALBUTEROL SULFATE
  9. VALCYTE [Concomitant]
     Active Substance: VALGANCICLOVIR HYDROCHLORIDE
  10. LANTUS [Concomitant]
     Active Substance: INSULIN GLARGINE
  11. NYSTATIN. [Concomitant]
     Active Substance: NYSTATIN
  12. TRAMADOL HYDROCHLORIDE. [Concomitant]
     Active Substance: TRAMADOL HYDROCHLORIDE
  13. ALPRAZOLAM. [Concomitant]
     Active Substance: ALPRAZOLAM
  14. MIRTAZAPINE. [Concomitant]
     Active Substance: MIRTAZAPINE
  15. NAC                                /00082801/ [Concomitant]
  16. PULMOZYME [Concomitant]
     Active Substance: DORNASE ALFA
  17. URSODIOL. [Concomitant]
     Active Substance: URSODIOL
  18. AZTREONAM LYSINE [Suspect]
     Active Substance: AZTREONAM LYSINE
     Indication: CYSTIC FIBROSIS LUNG
     Dosage: 75 MG, TID
     Route: 055
     Dates: start: 20120127
  19. METOCLOPRAMIDE HYDROCHLORIDE. [Concomitant]
     Active Substance: METOCLOPRAMIDE HYDROCHLORIDE
  20. METOPROLOL TARTRATE. [Concomitant]
     Active Substance: METOPROLOL TARTRATE
  21. NOVOLOG [Concomitant]
     Active Substance: INSULIN ASPART
  22. AZITHROMYCIN [Concomitant]
     Active Substance: AZITHROMYCIN ANHYDROUS
  23. SIMVASTATIN. [Concomitant]
     Active Substance: SIMVASTATIN
  24. ADEKS                              /07504401/ [Concomitant]
  25. CALCARB [Concomitant]
  26. MEGESTROL ACETATE. [Concomitant]
     Active Substance: MEGESTROL ACETATE
  27. TOBI [Concomitant]
     Active Substance: TOBRAMYCIN
  28. MYCOPHENOLATE MOFETIL. [Concomitant]
     Active Substance: MYCOPHENOLATE MOFETIL

REACTIONS (1)
  - Lung transplant rejection [Fatal]
